FAERS Safety Report 12245302 (Version 4)
Quarter: 2020Q3

REPORT INFORMATION
  Report Type: Spontaneous
  Country: US (occurrence: US)
  Receive Date: 20160407
  Receipt Date: 20200817
  Transmission Date: 20201102
  Serious: No
  Sender: FDA-Public Use
  Company Number: US-PFIZER INC-2016167644

PATIENT
  Age: 86 Year
  Sex: Female
  Weight: 54.4 kg

DRUGS (2)
  1. PREMARIN [Suspect]
     Active Substance: ESTROGENS, CONJUGATED
     Indication: HYSTERECTOMY
     Dosage: UNK
  2. PREMARIN [Suspect]
     Active Substance: ESTROGENS, CONJUGATED
     Indication: HORMONE REPLACEMENT THERAPY
     Dosage: 0.312 MG, (ONE HALF OF 0.625 MG PREMARIN TABLET)

REACTIONS (4)
  - Cyst [Unknown]
  - Abnormal behaviour [Unknown]
  - Vulvovaginal swelling [Unknown]
  - Malaise [Unknown]
